FAERS Safety Report 5155440-2 (Version None)
Quarter: 2006Q4

REPORT INFORMATION
  Report Type: 
  Country: None (occurrence: None)
  Receive Date: 20061114
  Receipt Date: 20061103
  Transmission Date: 20070319
  Serious: Yes (Other)
  Sender: FDA-Public Use
  Company Number: 2006135433

PATIENT
  Sex: Male
  Weight: 83.9154 kg

DRUGS (3)
  1. LIPITOR [Suspect]
     Indication: BLOOD CHOLESTEROL INCREASED
     Dosage: 10 MG (10 MG, 1 IN 1 D)
     Dates: start: 20000101
  2. LISINOPRIL [Concomitant]
  3. NIACIN [Concomitant]

REACTIONS (4)
  - DEAFNESS UNILATERAL [None]
  - LIPIDS ABNORMAL [None]
  - TINNITUS [None]
  - VISUAL DISTURBANCE [None]
